FAERS Safety Report 7199345-4 (Version None)
Quarter: 2010Q4

REPORT INFORMATION
  Report Type: 
  Country: None (occurrence: None)
  Receive Date: 20101228
  Receipt Date: 20101216
  Transmission Date: 20110411
  Serious: Yes (Hospitalization)
  Sender: FDA-Public Use
  Company Number: JP-SANOFI-AVENTIS-2010SA074796

PATIENT
  Age: 53 Year
  Sex: Male
  Weight: 55 kg

DRUGS (10)
  1. ELPLAT [Suspect]
     Indication: LARGE INTESTINE CARCINOMA
     Route: 041
     Dates: start: 20100915, end: 20100915
  2. ELPLAT [Suspect]
     Route: 041
     Dates: start: 20101115, end: 20101115
  3. CALCIUM LEVOFOLINATE [Suspect]
     Indication: LARGE INTESTINE CARCINOMA
     Route: 041
     Dates: start: 20100915, end: 20100915
  4. CALCIUM LEVOFOLINATE [Suspect]
     Route: 041
     Dates: start: 20101115, end: 20101115
  5. FLUOROURACIL [Suspect]
     Indication: LARGE INTESTINE CARCINOMA
     Route: 040
     Dates: start: 20100915, end: 20100915
  6. FLUOROURACIL [Suspect]
     Route: 041
     Dates: start: 20100915, end: 20100916
  7. FLUOROURACIL [Suspect]
     Route: 040
     Dates: start: 20101115, end: 20101115
  8. FLUOROURACIL [Suspect]
     Route: 041
     Dates: start: 20101115, end: 20101116
  9. AVASTIN [Suspect]
     Indication: LARGE INTESTINE CARCINOMA
     Route: 041
     Dates: start: 20100915, end: 20100915
  10. AVASTIN [Suspect]
     Route: 041
     Dates: start: 20101115, end: 20101115

REACTIONS (1)
  - CARDIAC FAILURE CONGESTIVE [None]
